FAERS Safety Report 19987835 (Version 1)
Quarter: 2021Q4

REPORT INFORMATION
  Report Type: Spontaneous
  Country: HR (occurrence: HR)
  Receive Date: 20211023
  Receipt Date: 20211023
  Transmission Date: 20220303
  Serious: Yes (Other)
  Sender: FDA-Public Use
  Company Number: HR-ABBVIE-21K-216-4131803-00

PATIENT
  Sex: Male

DRUGS (4)
  1. VALPROATE SODIUM [Suspect]
     Active Substance: VALPROATE SODIUM
     Indication: Product used for unknown indication
     Route: 048
     Dates: start: 201902, end: 201902
  2. ALPRAZOLAM [Suspect]
     Active Substance: ALPRAZOLAM
     Indication: Product used for unknown indication
     Route: 048
     Dates: start: 201902, end: 201902
  3. TIANEPTINE SODIUM [Suspect]
     Active Substance: TIANEPTINE SODIUM
     Indication: Product used for unknown indication
     Route: 048
     Dates: start: 201902, end: 201902
  4. CLONAZEPAM [Suspect]
     Active Substance: CLONAZEPAM
     Indication: Product used for unknown indication
     Route: 048
     Dates: start: 201902, end: 201902

REACTIONS (4)
  - Cardiac arrest [Unknown]
  - Suicide attempt [Unknown]
  - Loss of consciousness [Unknown]
  - Intentional overdose [Unknown]

NARRATIVE: CASE EVENT DATE: 20190201
